FAERS Safety Report 22352737 (Version 1)
Quarter: 2023Q2

REPORT INFORMATION
  Report Type: Spontaneous
  Country: GB (occurrence: GB)
  Receive Date: 20230523
  Receipt Date: 20230523
  Transmission Date: 20230721
  Serious: Yes (Hospitalization, Disabling, Other)
  Sender: FDA-Public Use
  Company Number: GB-MHRA-INP5E234284-E930-40F0-9E99-68C5B270977B

PATIENT
  Age: 62 Year
  Sex: Female
  Weight: 79.3 kg

DRUGS (10)
  1. NITROFURANTOIN [Suspect]
     Active Substance: NITROFURANTOIN
     Indication: Product used for unknown indication
     Dosage: UNK
     Route: 065
  2. AMOXICILLIN [Concomitant]
     Active Substance: AMOXICILLIN
     Indication: Product used for unknown indication
     Dosage: UNK (TAKE TWO TWICE A DAY)
     Route: 065
     Dates: start: 20220321
  3. ATORVASTATIN [Concomitant]
     Active Substance: ATORVASTATIN
     Indication: Product used for unknown indication
     Dosage: UNK (TAKE ONE TABLET AT NIGHT)
     Route: 065
     Dates: start: 20220310
  4. CEPHALEXIN [Concomitant]
     Active Substance: CEPHALEXIN
     Indication: Product used for unknown indication
     Dosage: UNK (1 THREE TIMES A DAY)
     Route: 065
     Dates: start: 20220106
  5. CEPHALEXIN [Concomitant]
     Active Substance: CEPHALEXIN
     Dosage: UNK (1 THREE TIMES A DAY)
     Route: 065
     Dates: start: 20220112
  6. CLARITHROMYCIN [Concomitant]
     Active Substance: CLARITHROMYCIN
     Indication: Product used for unknown indication
     Dosage: UNK (TAKE ONE TABLET TWICE A DAY FOR 7 DAYS)
     Route: 065
     Dates: start: 20220321
  7. DOXYCYCLINE [Concomitant]
     Active Substance: DOXYCYCLINE
     Indication: Product used for unknown indication
     Dosage: UNK (2 TODAY AND FOLLOW WITH ONE EVERY DAY)
     Route: 065
     Dates: start: 20220303
  8. ESOMEPRAZOLE [Concomitant]
     Active Substance: ESOMEPRAZOLE
     Indication: Product used for unknown indication
     Dosage: UNK (1 CAPSULE TWICE A DAY FOR 2 WEEKS, THEN TAKE ONE CAPSULE DAILY FOR ANOTHER 4 WEEKS)
     Route: 065
     Dates: start: 20220310
  9. NITROGLYCERIN [Concomitant]
     Active Substance: NITROGLYCERIN
     Indication: Product used for unknown indication
     Dosage: UNK (1-2 PUFFS UNDER THE TONGUE WHEN REQUIRED FOR CHEST FOR PAIN OR SEVERE SHORTNESS OF BREATH)
     Route: 065
     Dates: start: 20220217
  10. LEVOFLOXACIN [Concomitant]
     Active Substance: LEVOFLOXACIN
     Indication: Product used for unknown indication
     Dosage: UNK (1 TABLET ONCE DAILY FOR 10 DAYS)
     Route: 065
     Dates: start: 20220310

REACTIONS (4)
  - Interstitial lung disease [Unknown]
  - Chest discomfort [Unknown]
  - Pulmonary fibrosis [Not Recovered/Not Resolved]
  - Dyspnoea [Unknown]

NARRATIVE: CASE EVENT DATE: 20220217
